FAERS Safety Report 18653663 (Version 1)
Quarter: 2020Q4

REPORT INFORMATION
  Report Type: Report from Study
  Country: US (occurrence: US)
  Receive Date: 20201223
  Receipt Date: 20201223
  Transmission Date: 20210114
  Serious: Yes (Other)
  Sender: FDA-Public Use
  Company Number: US-TAKEDA-2020TUS036880

PATIENT
  Sex: Male
  Weight: 77 kg

DRUGS (2)
  1. VEDOLIZUMAB [Suspect]
     Active Substance: VEDOLIZUMAB
     Indication: COLITIS ULCERATIVE
     Dosage: 300 MILLIGRAM
     Route: 042
     Dates: start: 20200812
  2. XELJANZ [Suspect]
     Active Substance: TOFACITINIB CITRATE
     Indication: PRODUCT USED FOR UNKNOWN INDICATION
     Dosage: 10 MILLIGRAM
     Route: 065

REACTIONS (10)
  - Back pain [Recovering/Resolving]
  - Nausea [Recovering/Resolving]
  - Asthenia [Unknown]
  - Headache [Unknown]
  - Feeling abnormal [Not Recovered/Not Resolved]
  - SARS-CoV-2 test positive [Unknown]
  - Weight decreased [Unknown]
  - Colitis ulcerative [Unknown]
  - Disturbance in attention [Recovering/Resolving]
  - Fatigue [Recovering/Resolving]
